FAERS Safety Report 7544179-1 (Version None)
Quarter: 2011Q2

REPORT INFORMATION
  Report Type: 
  Country: None (occurrence: None)
  Receive Date: 20110613
  Receipt Date: 20070806
  Transmission Date: 20111010
  Serious: Yes (Hospitalization, Other)
  Sender: FDA-Public Use
  Company Number: PHFR2007GB02065

PATIENT
  Sex: Male

DRUGS (3)
  1. ALFUZOSIN HCL [Concomitant]
     Dosage: 10MG/DAY
     Route: 048
  2. CLOZAPINE [Suspect]
     Indication: SCHIZOPHRENIA
     Dosage: 225 MG/DAY
     Route: 048
     Dates: start: 20020313
  3. FUROSEMIDE [Concomitant]
     Dosage: 40MG/DAY
     Route: 048

REACTIONS (2)
  - STAPHYLOCOCCAL INFECTION [None]
  - URETHRAL STENOSIS [None]
